FAERS Safety Report 7957076-4 (Version None)
Quarter: 2011Q4

REPORT INFORMATION
  Report Type: 
  Country: None (occurrence: None)
  Receive Date: 20111205
  Receipt Date: 20111123
  Transmission Date: 20120403
  Serious: Yes (Hospitalization)
  Sender: FDA-Public Use
  Company Number: US-GENZYME-CLOF-1001920

PATIENT
  Age: 70 Year
  Sex: Female
  Weight: 73.63 kg

DRUGS (9)
  1. ZYVOX [Concomitant]
     Indication: PRODUCT USED FOR UNKNOWN INDICATION
     Dosage: UNK
  2. CLOLAR [Suspect]
     Dosage: 20 MG/M2, UNK
     Route: 065
     Dates: start: 20111107, end: 20111111
  3. GENTAMICIN [Concomitant]
     Indication: PRODUCT USED FOR UNKNOWN INDICATION
     Dosage: UNK
  4. VORICONAZOLE [Concomitant]
     Indication: PRODUCT USED FOR UNKNOWN INDICATION
     Dosage: UNK
  5. VANCOMYCIN [Concomitant]
     Indication: PRODUCT USED FOR UNKNOWN INDICATION
     Dosage: UNK
  6. AVELOX [Concomitant]
     Indication: LUNG INFECTION
     Dosage: UNK
  7. CLOLAR [Suspect]
     Indication: ACUTE MYELOID LEUKAEMIA
     Dosage: 20 MG/M2, UNK
     Route: 065
     Dates: start: 20111018
  8. ZOSYN [Concomitant]
     Indication: PRODUCT USED FOR UNKNOWN INDICATION
     Dosage: UNK
  9. ZITHROMAX [Concomitant]
     Indication: LUNG INFECTION
     Dosage: UNK

REACTIONS (2)
  - RENAL FAILURE ACUTE [None]
  - HYPOKALAEMIA [None]
